FAERS Safety Report 19280795 (Version 2)
Quarter: 2021Q2

REPORT INFORMATION
  Report Type: Spontaneous
  Country: US (occurrence: US)
  Receive Date: 20210521
  Receipt Date: 20210602
  Transmission Date: 20210717
  Serious: No
  Sender: FDA-Public Use
  Company Number: US-TEVA-2021-US-1911807

PATIENT
  Sex: Female

DRUGS (1)
  1. ARIPIPRAZOLE TEVA [Suspect]
     Active Substance: ARIPIPRAZOLE
     Route: 065

REACTIONS (18)
  - Throat irritation [Unknown]
  - Madarosis [Not Recovered/Not Resolved]
  - Tongue coated [Unknown]
  - Adverse event [Not Recovered/Not Resolved]
  - Sticky skin [Not Recovered/Not Resolved]
  - Delusion [Not Recovered/Not Resolved]
  - Mental disorder [Unknown]
  - Skin discolouration [Unknown]
  - Feeling abnormal [Unknown]
  - Weight decreased [Unknown]
  - Skin injury [Unknown]
  - Skin burning sensation [Not Recovered/Not Resolved]
  - Psychotic disorder [Not Recovered/Not Resolved]
  - Cerebral disorder [Unknown]
  - Hair texture abnormal [Not Recovered/Not Resolved]
  - Skin texture abnormal [Not Recovered/Not Resolved]
  - Eye irritation [Unknown]
  - Hair injury [Not Recovered/Not Resolved]
